FAERS Safety Report 8232012-4 (Version None)
Quarter: 2012Q1

REPORT INFORMATION
  Report Type: 
  Country: None (occurrence: None)
  Receive Date: 20120323
  Receipt Date: 20120316
  Transmission Date: 20120608
  Serious: Yes (Other)
  Sender: FDA-Public Use
  Company Number: US-BAYER-2011-111980

PATIENT
  Age: 36 Year
  Sex: Female
  Weight: 81.633 kg

DRUGS (4)
  1. PHENERGAN [Concomitant]
  2. DICYCLOMINE [Concomitant]
  3. NEXIUM [Concomitant]
  4. YAZ [Suspect]
     Indication: CONTRACEPTION
     Dosage: UNK
     Route: 048
     Dates: start: 20090101, end: 20100101

REACTIONS (8)
  - INJURY [None]
  - GALLBLADDER INJURY [None]
  - EMOTIONAL DISTRESS [None]
  - ANHEDONIA [None]
  - GENERAL PHYSICAL HEALTH DETERIORATION [None]
  - CHOLECYSTITIS [None]
  - PAIN [None]
  - ANXIETY [None]
